FAERS Safety Report 17904676 (Version 1)
Quarter: 2020Q2

REPORT INFORMATION
  Report Type: Spontaneous
  Country: US (occurrence: US)
  Receive Date: 20200616
  Receipt Date: 20200616
  Transmission Date: 20200714
  Serious: No
  Sender: FDA-Public Use
  Company Number: US-ROCHE-2477579

PATIENT
  Sex: Female
  Weight: 64.92 kg

DRUGS (2)
  1. ACTEMRA [Suspect]
     Active Substance: TOCILIZUMAB
     Indication: TEMPORAL ARTERITIS
     Route: 042
     Dates: start: 20190506, end: 20190925
  2. BENADRYL [Concomitant]
     Active Substance: DIPHENHYDRAMINE HYDROCHLORIDE

REACTIONS (6)
  - Cough [Unknown]
  - Intentional product use issue [Unknown]
  - Feeling hot [Unknown]
  - Dyspnoea [Unknown]
  - Off label use [Unknown]
  - Intentional product misuse [Unknown]
